FAERS Safety Report 4493902-1 (Version None)
Quarter: 2004Q4

REPORT INFORMATION
  Report Type: 
  Country: None (occurrence: None)
  Receive Date: 20041105
  Receipt Date: 20041027
  Transmission Date: 20050328
  Serious: Yes (Other)
  Sender: FDA-Public Use
  Company Number: DE-JNJFOC-20041003240

PATIENT
  Age: 51 Year
  Sex: Male

DRUGS (9)
  1. INFLIXIMAB [Suspect]
     Indication: ANKYLOSING SPONDYLITIS
     Dosage: PATIENT HAD RECEIVED A TOTAL OF 4 INFUSIONS
     Route: 042
  2. METHOTREXATE [Concomitant]
  3. CLOPREDNOL [Concomitant]
  4. ALENDRONATE SODIUM [Concomitant]
  5. CALCIGEN D [Concomitant]
  6. CALCIGEN D [Concomitant]
  7. CALCIGEN D [Concomitant]
  8. CALCIGEN D [Concomitant]
  9. TRAMADOL HCL [Concomitant]
     Dosage: 100-200MG QD

REACTIONS (6)
  - HYPERHIDROSIS [None]
  - INFUSION RELATED REACTION [None]
  - PALPITATIONS [None]
  - RASH [None]
  - TACHYCARDIA [None]
  - URTICARIA [None]
